FAERS Safety Report 7584198-2 (Version None)
Quarter: 2011Q2

REPORT INFORMATION
  Report Type: 
  Country: None (occurrence: None)
  Receive Date: 20110628
  Receipt Date: 20110628
  Transmission Date: 20111010
  Serious: No
  Sender: FDA-Public Use
  Company Number: None

PATIENT
  Sex: Female
  Weight: 64.8644 kg

DRUGS (1)
  1. NIASPAN [Suspect]
     Indication: LOW DENSITY LIPOPROTEIN INCREASED
     Dosage: 500 MG ONE TAB Q PM ORAL 14 CAPSULES TOTAL
     Route: 048

REACTIONS (3)
  - PAIN OF SKIN [None]
  - ABDOMINAL PAIN UPPER [None]
  - SKIN BURNING SENSATION [None]
